FAERS Safety Report 14577495 (Version 1)
Quarter: 2018Q1

REPORT INFORMATION
  Report Type: Spontaneous
  Country: US (occurrence: US)
  Receive Date: 20180226
  Receipt Date: 20180226
  Transmission Date: 20180509
  Serious: Yes (Life-Threatening, Hospitalization, Other)
  Sender: FDA-Public Use
  Company Number: None

PATIENT
  Age: 30 Year
  Sex: Female
  Weight: 52.2 kg

DRUGS (1)
  1. NEXPLANON [Suspect]
     Active Substance: ETONOGESTREL
     Indication: CONTRACEPTION
     Dosage: ?          OTHER FREQUENCY:IT^S AN IMPLANT;?
     Route: 058
     Dates: start: 20150515

REACTIONS (4)
  - Type 1 diabetes mellitus [None]
  - Blood glucose increased [None]
  - Disorientation [None]
  - Pancreatic disorder [None]

NARRATIVE: CASE EVENT DATE: 20150530
